FAERS Safety Report 13350852 (Version 7)
Quarter: 2020Q3

REPORT INFORMATION
  Report Type: Report from Study
  Country: US (occurrence: US)
  Receive Date: 20170320
  Receipt Date: 20200110
  Transmission Date: 20201104
  Serious: Yes (Hospitalization)
  Sender: FDA-Public Use
  Company Number: PHEH2017US007759

PATIENT
  Age: 4 Year
  Sex: Male

DRUGS (6)
  1. AFINITOR DISPERZ [Suspect]
     Active Substance: EVEROLIMUS
     Dosage: UNK
     Route: 048
     Dates: start: 20170312
  2. TRILEPTAL [Suspect]
     Active Substance: OXCARBAZEPINE
     Indication: PRODUCT USED FOR UNKNOWN INDICATION
     Route: 065
  3. TOPAMAX [Concomitant]
     Active Substance: TOPIRAMATE
     Indication: PRODUCT USED FOR UNKNOWN INDICATION
     Dosage: UNK
     Route: 065
  4. AFINITOR DISPERZ [Suspect]
     Active Substance: EVEROLIMUS
     Dosage: 8 MG, QD
     Route: 048
     Dates: end: 20170311
  5. AFINITOR DISPERZ [Suspect]
     Active Substance: EVEROLIMUS
     Indication: ASTROCYTOMA, LOW GRADE
     Dosage: 2 MG, QD
     Route: 048
     Dates: start: 20140702, end: 20170308
  6. AFINITOR DISPERZ [Suspect]
     Active Substance: EVEROLIMUS
     Dosage: 9 MG, QD
     Route: 048
     Dates: start: 20190911

REACTIONS (11)
  - Seizure [Recovered/Resolved]
  - Pyrexia [Recovered/Resolved]
  - Pyrexia [Recovered/Resolved]
  - Pyrexia [Recovered/Resolved]
  - Musculoskeletal stiffness [Recovered/Resolved]
  - Pharyngeal abscess [Unknown]
  - Illness [Unknown]
  - Oral herpes [Unknown]
  - Ear infection [Recovered/Resolved]
  - Constipation [Unknown]
  - Faeces hard [Unknown]

NARRATIVE: CASE EVENT DATE: 20170308
